FAERS Safety Report 8040842-7 (Version None)
Quarter: 2012Q1

REPORT INFORMATION
  Report Type: 
  Country: None (occurrence: None)
  Receive Date: 20120112
  Receipt Date: 20120101
  Transmission Date: 20120608
  Serious: Yes (Hospitalization)
  Sender: FDA-Public Use
  Company Number: DE-BIOGENIDEC-2011BI039035

PATIENT
  Age: 37 Year
  Sex: Female
  Weight: 66 kg

DRUGS (3)
  1. FALITHROM [Concomitant]
     Indication: THROMBOSIS PROPHYLAXIS
     Route: 048
     Dates: start: 20101101
  2. THREE-MONTH-INJECTION (NOS) FOR CONTRACEPTION [Concomitant]
     Indication: CONTRACEPTION
     Dates: start: 20111101
  3. TYSABRI [Suspect]
     Indication: RELAPSING-REMITTING MULTIPLE SCLEROSIS
     Route: 042
     Dates: start: 20091217, end: 20110719

REACTIONS (4)
  - UTERINE LEIOMYOMA [None]
  - FALL [None]
  - MULTIPLE SCLEROSIS RELAPSE [None]
  - STERNAL FRACTURE [None]
